FAERS Safety Report 11923933 (Version 1)
Quarter: 2016Q1

REPORT INFORMATION
  Report Type: Spontaneous
  Country: US (occurrence: US)
  Receive Date: 20160118
  Receipt Date: 20160118
  Transmission Date: 20160526
  Serious: No
  Sender: FDA-Public Use
  Company Number: US-MYLANLABS-2015M1011351

PATIENT
  Age: 72 Year
  Sex: Male

DRUGS (1)
  1. FENOFIBRATE TABLETS [Suspect]
     Active Substance: FENOFIBRATE
     Indication: HYPERLIPIDAEMIA
     Dosage: 54 MG, QD
     Route: 048
     Dates: start: 20150212

REACTIONS (1)
  - Foreign body [Not Recovered/Not Resolved]

NARRATIVE: CASE EVENT DATE: 20150212
